FAERS Safety Report 16423758 (Version 1)
Quarter: 2019Q2

REPORT INFORMATION
  Report Type: Spontaneous
  Country: GB (occurrence: GB)
  Receive Date: 20190613
  Receipt Date: 20190613
  Transmission Date: 20190711
  Serious: Yes (Hospitalization)
  Sender: FDA-Public Use
  Company Number: GB-TEVA-2019-GB-1061567

PATIENT
  Age: 67 Year
  Sex: Female

DRUGS (5)
  1. AVAMYS [Concomitant]
     Active Substance: FLUTICASONE FUROATE
     Dosage: IN EACH NOSTRIL
     Route: 045
  2. FOSTAIR [Concomitant]
     Active Substance: BECLOMETHASONE\FORMOTEROL
     Dosage: 200MICROGRAMS/DOSE / 6MICROGRAMS/DOSE
     Route: 055
  3. CARBOCISTEINE [Concomitant]
     Active Substance: CARBOCYSTEINE
  4. SALBUTAMOL [Concomitant]
     Active Substance: ALBUTEROL
     Dosage: 1-2 PUFFS 4 TIMES A DAY
     Route: 055
  5. AZITHROMYCIN ANHYDROUS. [Suspect]
     Active Substance: AZITHROMYCIN ANHYDROUS
     Indication: BRONCHIECTASIS
     Dosage: MONDAY, WEDNESDAY, FRIDAY
     Route: 048
     Dates: start: 20181002, end: 20181026

REACTIONS (3)
  - Agitation [Unknown]
  - Delirium [Not Recovered/Not Resolved]
  - Confusional state [Unknown]
